FAERS Safety Report 6586925-X (Version None)
Quarter: 2010Q1

REPORT INFORMATION
  Report Type: 
  Country: None (occurrence: None)
  Receive Date: 20100217
  Receipt Date: 20090409
  Transmission Date: 20100710
  Serious: No
  Sender: FDA-Public Use
  Company Number: US-ALLERGAN-0903775US

PATIENT
  Age: 36 Year
  Sex: Female

DRUGS (6)
  1. BOTOX COSMETIC [Suspect]
     Indication: SKIN WRINKLING
     Dosage: 12 UNITS, SINGLE
     Dates: start: 20090212, end: 20090212
  2. BOTOX COSMETIC [Suspect]
     Dosage: 15 UNITS, UNK
     Dates: start: 20081120, end: 20081120
  3. BOTOX COSMETIC [Suspect]
     Dosage: 15 UNITS, UNK
     Dates: start: 20080618, end: 20080618
  4. BOTOX COSMETIC [Suspect]
     Dosage: 15 UNITS, UNK
     Dates: start: 20080124, end: 20080124
  5. BOTOX COSMETIC [Suspect]
     Dosage: 15 UNITS, UNK
     Dates: start: 20071003, end: 20071003
  6. MULTI-VITAMINS [Concomitant]

REACTIONS (4)
  - ANXIETY [None]
  - FATIGUE [None]
  - FREQUENT BOWEL MOVEMENTS [None]
  - HEADACHE [None]
